FAERS Safety Report 13648548 (Version 1)
Quarter: 2017Q2

REPORT INFORMATION
  Report Type: Report from Study
  Country: TH (occurrence: TH)
  Receive Date: 20170613
  Receipt Date: 20170613
  Transmission Date: 20170830
  Serious: Yes (Other)
  Sender: FDA-Public Use
  Company Number: TH-MYLANLABS-2017M1035206

PATIENT

DRUGS (4)
  1. PREDNISOLONE. [Suspect]
     Active Substance: PREDNISOLONE
     Indication: SYSTEMIC LUPUS ERYTHEMATOSUS
     Dosage: 30MG PER DAY
     Route: 065
  2. AZATHIOPRINE. [Suspect]
     Active Substance: AZATHIOPRINE
     Indication: SYSTEMIC LUPUS ERYTHEMATOSUS
     Dosage: 100 MG PER DAY
     Route: 065
  3. BEVACIZUMAB [Concomitant]
     Active Substance: BEVACIZUMAB
     Indication: PURTSCHER RETINOPATHY
     Route: 065
  4. KENACORT [Concomitant]
     Active Substance: TRIAMCINOLONE
     Indication: PURTSCHER RETINOPATHY
     Route: 065

REACTIONS (1)
  - Sepsis [Unknown]
